FAERS Safety Report 7121922-7 (Version None)
Quarter: 2010Q4

REPORT INFORMATION
  Report Type: 
  Country: None (occurrence: None)
  Receive Date: 20101124
  Receipt Date: 20101116
  Transmission Date: 20110411
  Serious: Yes (Other)
  Sender: FDA-Public Use
  Company Number: US-TEVA-255834USA

PATIENT
  Sex: Female

DRUGS (1)
  1. DROSPERINONE AND ETHINYL ESTRADIOL TABLETS, 3.0 MG/0.02 MG (28-DAY REG [Suspect]

REACTIONS (1)
  - ABORTION SPONTANEOUS [None]
